FAERS Safety Report 21130873 (Version 2)
Quarter: 2022Q3

REPORT INFORMATION
  Report Type: Report from Study
  Country: US (occurrence: US)
  Receive Date: 20220726
  Receipt Date: 20220825
  Transmission Date: 20221027
  Serious: No
  Sender: FDA-Public Use
  Company Number: US-ETON PHARMACEUTICALS, INC-2022ETO000158

PATIENT

DRUGS (1)
  1. ALKINDI SPRINKLE [Suspect]
     Active Substance: HYDROCORTISONE
     Indication: Primary adrenal insufficiency
     Dosage: 1 MILLIGRAM, TID
     Route: 048

REACTIONS (4)
  - Wrong technique in product usage process [Unknown]
  - Product use complaint [Unknown]
  - Product physical issue [Unknown]
  - No adverse event [Unknown]
